FAERS Safety Report 15980004 (Version 1)
Quarter: 2019Q1

REPORT INFORMATION
  Report Type: Spontaneous
  Country: US (occurrence: US)
  Receive Date: 20190218
  Receipt Date: 20190218
  Transmission Date: 20190418
  Serious: Yes (Other)
  Sender: FDA-Public Use
  Company Number: None

PATIENT
  Age: 60 Year
  Sex: Female
  Weight: 83.25 kg

DRUGS (5)
  1. PROVIGIL [Concomitant]
     Active Substance: MODAFINIL
  2. ZYRTEC [Suspect]
     Active Substance: CETIRIZINE HYDROCHLORIDE
     Dosage: ?          QUANTITY:1 TABLET(S);?
     Route: 048
  3. HUMALOG [Concomitant]
     Active Substance: INSULIN LISPRO
  4. BENICAR [Concomitant]
     Active Substance: OLMESARTAN MEDOXOMIL
  5. OTEZLA [Concomitant]
     Active Substance: APREMILAST

REACTIONS (2)
  - Emotional distress [None]
  - Pruritus generalised [None]

NARRATIVE: CASE EVENT DATE: 20190131
